FAERS Safety Report 4824666-7 (Version None)
Quarter: 2005Q4

REPORT INFORMATION
  Report Type: 
  Country: None (occurrence: None)
  Receive Date: 20051012
  Receipt Date: 20050802
  Transmission Date: 20060501
  Serious: No
  Sender: FDA-Public Use
  Company Number: 2005S1000168

PATIENT
  Age: 55 Year
  Weight: 77.3 kg

DRUGS (9)
  1. CUBICIN [Suspect]
     Indication: ARTHRITIS INFECTIVE
     Dosage: Q24H;IV
     Route: 042
     Dates: start: 20050101
  2. CUBICIN [Suspect]
     Indication: STAPHYLOCOCCAL INFECTION
     Dosage: Q24H;IV
     Route: 042
     Dates: start: 20050101
  3. FUROSEMIDE [Concomitant]
  4. GENTAMICIN [Concomitant]
  5. LACTULOSE [Concomitant]
  6. PANTOPRAZOLE [Concomitant]
  7. SPIRONOLACTONE [Concomitant]
  8. OXYCONTIN [Concomitant]
  9. VANCOMYCIN [Concomitant]

REACTIONS (2)
  - ASTHENIA [None]
  - SLEEP APNOEA SYNDROME [None]
